FAERS Safety Report 24876889 (Version 3)
Quarter: 2025Q3

REPORT INFORMATION
  Report Type: Report from Study
  Country: CA (occurrence: CA)
  Receive Date: 20250123
  Receipt Date: 20250806
  Transmission Date: 20251021
  Serious: Yes (Hospitalization, Other)
  Sender: JOHNSON AND JOHNSON
  Company Number: CA-JNJFOC-20210122329

PATIENT
  Age: 43 Year
  Sex: Male
  Weight: 98.2 kg

DRUGS (4)
  1. REMICADE [Suspect]
     Active Substance: INFLIXIMAB
     Indication: Crohn^s disease
     Route: 041
     Dates: start: 20180621
  2. REMICADE [Suspect]
     Active Substance: INFLIXIMAB
     Route: 041
     Dates: start: 20180502
  3. REMICADE [Suspect]
     Active Substance: INFLIXIMAB
     Route: 041
     Dates: start: 20180621
  4. REMICADE [Suspect]
     Active Substance: INFLIXIMAB
     Route: 041

REACTIONS (24)
  - Post procedural infection [Unknown]
  - Post procedural complication [Unknown]
  - Intestinal obstruction [Not Recovered/Not Resolved]
  - Dehydration [Recovering/Resolving]
  - Faecal volume increased [Unknown]
  - Muscle rupture [Unknown]
  - Hernia [Recovering/Resolving]
  - Syncope [Unknown]
  - Tremor [Unknown]
  - Retching [Unknown]
  - Heart rate increased [Unknown]
  - Pyrexia [Unknown]
  - Colostomy closure [Recovered/Resolved]
  - Abdominal pain [Not Recovered/Not Resolved]
  - Pain [Unknown]
  - Influenza [Unknown]
  - Nausea [Recovered/Resolved]
  - Infusion related reaction [Recovered/Resolved]
  - Defaecation urgency [Not Recovered/Not Resolved]
  - Diarrhoea [Not Recovered/Not Resolved]
  - Therapeutic product effect decreased [Unknown]
  - Inappropriate schedule of product administration [Unknown]
  - Malaise [Not Recovered/Not Resolved]
  - Chills [Not Recovered/Not Resolved]

NARRATIVE: CASE EVENT DATE: 20200101
